FAERS Safety Report 17788637 (Version 2)
Quarter: 2020Q2

REPORT INFORMATION
  Report Type: Report from Study
  Country: US (occurrence: US)
  Receive Date: 20200514
  Receipt Date: 20200618
  Transmission Date: 20200714
  Serious: Yes (Hospitalization)
  Sender: FDA-Public Use
  Company Number: US-EISAI MEDICAL RESEARCH-EC-2015-004975

PATIENT
  Age: 67 Year
  Sex: Male
  Weight: 163 kg

DRUGS (47)
  1. LENVIMA [Suspect]
     Active Substance: LENVATINIB
     Dosage: MISSED 3 DOSES
     Route: 048
     Dates: start: 2017, end: 201809
  2. CHLORINE [Suspect]
     Active Substance: CHLORINE
     Indication: PRODUCT USED FOR UNKNOWN INDICATION
     Dosage: DOSE AND FREQUENCY UNKNOWN
     Route: 050
  3. UREA. [Concomitant]
     Active Substance: UREA
  4. SYNTHROID [Concomitant]
     Active Substance: LEVOTHYROXINE SODIUM
  5. LENVIMA [Suspect]
     Active Substance: LENVATINIB
     Indication: THYROID CANCER
     Route: 048
     Dates: start: 20150212, end: 2015
  6. FLONASE [Concomitant]
     Active Substance: FLUTICASONE PROPIONATE
  7. ATENOLOL. [Concomitant]
     Active Substance: ATENOLOL
  8. DILAUDID [Concomitant]
     Active Substance: HYDROMORPHONE HYDROCHLORIDE
  9. SHINGRIX [Concomitant]
     Active Substance: RECOMBINANT VARICELLA ZOSTER VIRUS (VZV) GLYCOPROTEIN E
  10. LENVIMA [Suspect]
     Active Substance: LENVATINIB
     Route: 048
     Dates: start: 201810
  11. KLOR-CON [Concomitant]
     Active Substance: POTASSIUM CHLORIDE
  12. NORVASC [Concomitant]
     Active Substance: AMLODIPINE BESYLATE
  13. MUPIROCIN. [Concomitant]
     Active Substance: MUPIROCIN
  14. TOPROL XL [Concomitant]
     Active Substance: METOPROLOL SUCCINATE
  15. METHYLPREDNISONE [Concomitant]
     Active Substance: METHYLPREDNISOLONE
  16. BETAMETHASONE DIPROPIO [Concomitant]
  17. LENVIMA [Suspect]
     Active Substance: LENVATINIB
     Route: 048
     Dates: start: 201507, end: 201707
  18. AMLODIPINE [Concomitant]
     Active Substance: AMLODIPINE BESYLATE
  19. NYAMYC [Concomitant]
     Active Substance: NYSTATIN
  20. IOPHEN-C [Concomitant]
  21. ACETAMINOPHEN CODEINE [Concomitant]
     Active Substance: ACETAMINOPHEN\CODEINE PHOSPHATE
  22. DICLOFENAC [Concomitant]
     Active Substance: DICLOFENAC
  23. HCTZ [Suspect]
     Active Substance: HYDROCHLOROTHIAZIDE
     Indication: HYPERTENSION
     Route: 048
     Dates: end: 201809
  24. KETOCONAZOLE. [Concomitant]
     Active Substance: KETOCONAZOLE
  25. AMOXAPINE. [Concomitant]
     Active Substance: AMOXAPINE
  26. HYDROCORTISONE. [Concomitant]
     Active Substance: HYDROCORTISONE
  27. CHERATUSSIN [Concomitant]
     Active Substance: AMMONIUM CHLORIDE\DEXTROMETHORPHAN\SODIUM CITRATE
  28. LISINOPRIL. [Concomitant]
     Active Substance: LISINOPRIL
  29. COLCHICINE. [Concomitant]
     Active Substance: COLCHICINE
  30. HIBICLENS [Concomitant]
     Active Substance: CHLORHEXIDINE GLUCONATE
  31. AMOXICILLIN. [Suspect]
     Active Substance: AMOXICILLIN
     Indication: PRODUCT USED FOR UNKNOWN INDICATION
     Dosage: DOSE AND FREQUENCY UNKNOWN
     Route: 065
     Dates: start: 20160803
  32. CLINDAMYCIN PHOSPHATE. [Concomitant]
     Active Substance: CLINDAMYCIN PHOSPHATE
  33. MECLOFENAMATE SODIUM. [Concomitant]
     Active Substance: MECLOFENAMATE SODIUM
  34. INDOMETHACIN. [Concomitant]
     Active Substance: INDOMETHACIN
  35. COLCRYS [Concomitant]
     Active Substance: COLCHICINE
  36. PREDNISONE. [Concomitant]
     Active Substance: PREDNISONE
  37. K-PHOS NEUTRAL [Concomitant]
     Active Substance: POTASSIUM PHOSPHATE\SODIUM PHOSPHATE
  38. NEXAVAR [Concomitant]
     Active Substance: SORAFENIB
  39. PRILOSEC [Concomitant]
     Active Substance: OMEPRAZOLE MAGNESIUM
  40. GUAIFENESIN-CODEINE [Concomitant]
  41. OMEPRAZOLE. [Concomitant]
     Active Substance: OMEPRAZOLE
  42. NYSTOP [Concomitant]
     Active Substance: NYSTATIN
  43. LENVIMA [Suspect]
     Active Substance: LENVATINIB
     Route: 048
     Dates: start: 20150310, end: 2015
  44. MECLIZINE [Concomitant]
     Active Substance: MECLIZINE HYDROCHLORIDE
  45. MINOCYCLINE HCL [Concomitant]
     Active Substance: MINOCYCLINE HYDROCHLORIDE
  46. MORPHINE [Concomitant]
     Active Substance: MORPHINE
  47. OXYCODONE-ACETAMINOPHEN [Concomitant]
     Active Substance: ACETAMINOPHEN\OXYCODONE HYDROCHLORIDE

REACTIONS (67)
  - Synovial fluid white blood cells positive [Unknown]
  - Muscle fatigue [Recovering/Resolving]
  - Sinus congestion [Unknown]
  - Gait inability [Unknown]
  - Abdominal pain upper [Unknown]
  - Upper-airway cough syndrome [Not Recovered/Not Resolved]
  - Muscle spasms [Not Recovered/Not Resolved]
  - Lethargy [Not Recovered/Not Resolved]
  - Food poisoning [Unknown]
  - Epicondylitis [Unknown]
  - Bursitis [Unknown]
  - Blood pressure fluctuation [Unknown]
  - Palmar-plantar erythrodysaesthesia syndrome [Not Recovered/Not Resolved]
  - Hypertension [Unknown]
  - Cough [Not Recovered/Not Resolved]
  - Blood potassium decreased [Unknown]
  - Neck injury [Unknown]
  - Somnolence [Not Recovered/Not Resolved]
  - Heart rate decreased [Not Recovered/Not Resolved]
  - Bone marrow failure [Unknown]
  - Dry mouth [Unknown]
  - Memory impairment [Unknown]
  - Paraesthesia [Not Recovered/Not Resolved]
  - Blood magnesium decreased [Unknown]
  - Hormone level abnormal [Unknown]
  - Breast mass [Unknown]
  - Muscle atrophy [Not Recovered/Not Resolved]
  - Cognitive disorder [Recovered/Resolved]
  - Productive cough [Not Recovered/Not Resolved]
  - Epistaxis [Not Recovered/Not Resolved]
  - Oesophageal dilatation [Unknown]
  - Blood iron increased [Unknown]
  - Foreign body in eye [Unknown]
  - Chondrocalcinosis pyrophosphate [Not Recovered/Not Resolved]
  - Arthralgia [Recovering/Resolving]
  - Fatigue [Unknown]
  - Dental caries [Not Recovered/Not Resolved]
  - Tooth abscess [Unknown]
  - Malaise [Not Recovered/Not Resolved]
  - Oropharyngeal pain [Unknown]
  - Oedema peripheral [Unknown]
  - Vertigo [Unknown]
  - Joint swelling [Unknown]
  - Feeling cold [Unknown]
  - Gout [Unknown]
  - Lymphoedema [Not Recovered/Not Resolved]
  - Aortic dilatation [Unknown]
  - Diarrhoea [Not Recovered/Not Resolved]
  - Myalgia [Unknown]
  - Abdominal pain [Unknown]
  - Palpitations [Unknown]
  - Dizziness [Not Recovered/Not Resolved]
  - Gingival bleeding [Unknown]
  - Taste disorder [Unknown]
  - Nausea [Not Recovered/Not Resolved]
  - Defaecation urgency [Unknown]
  - Pain [Unknown]
  - Nasal discomfort [Not Recovered/Not Resolved]
  - Electrolyte depletion [Unknown]
  - Abdominal pain upper [Unknown]
  - Nipple pain [Unknown]
  - Pain in extremity [Unknown]
  - Malignant neoplasm progression [Unknown]
  - Hordeolum [Unknown]
  - Toothache [Not Recovered/Not Resolved]
  - Blood uric acid increased [Unknown]
  - Dermatitis allergic [Unknown]

NARRATIVE: CASE EVENT DATE: 2015
